FAERS Safety Report 5366977-5 (Version None)
Quarter: 2007Q2

REPORT INFORMATION
  Report Type: 
  Country: None (occurrence: None)
  Receive Date: 20070619
  Receipt Date: 20070605
  Transmission Date: 20071010
  Serious: Yes (Death)
  Sender: FDA-Public Use
  Company Number: CERZ-11736

PATIENT
  Sex: Female
  Weight: 7.8 kg

DRUGS (1)
  1. CEREZYME [Suspect]
     Indication: GAUCHER'S DISEASE
     Dosage: 400 UNITS QWK IV
     Route: 042
     Dates: start: 20061004

REACTIONS (2)
  - NEUROPATHY [None]
  - RESPIRATORY FAILURE [None]
